FAERS Safety Report 6493516-8 (Version None)
Quarter: 2009Q4

REPORT INFORMATION
  Report Type: 
  Country: None (occurrence: None)
  Receive Date: 20091214
  Receipt Date: 20091208
  Transmission Date: 20100525
  Serious: Yes (Other)
  Sender: FDA-Public Use
  Company Number: TW-ROXANE LABORATORIES, INC.-2009-RO-01234RO

PATIENT
  Age: 31 Year
  Sex: Female

DRUGS (8)
  1. RISPERIDONE [Suspect]
     Indication: SCHIZOPHRENIA
  2. OLANZAPINE [Suspect]
     Indication: SCHIZOPHRENIA
  3. BIPERIDEN HYDROCHLORIDE TAB [Suspect]
     Indication: PLEUROTHOTONUS
  4. AMISULPRIDE [Concomitant]
     Indication: SCHIZOPHRENIA
  5. ARIPIPRAZOLE [Concomitant]
     Indication: SCHIZOPHRENIA
     Dosage: 30 MG
  6. ARIPIPRAZOLE [Concomitant]
     Indication: PLEUROTHOTONUS
  7. AMANTADINE [Concomitant]
     Indication: SCHIZOPHRENIA
     Dosage: 200 MG
  8. AMANTADINE [Concomitant]
     Indication: PLEUROTHOTONUS

REACTIONS (3)
  - DRUG INEFFECTIVE [None]
  - DYSKINESIA [None]
  - PLEUROTHOTONUS [None]
